FAERS Safety Report 4329954-9 (Version None)
Quarter: 2004Q2

REPORT INFORMATION
  Report Type: 
  Country: None (occurrence: None)
  Receive Date: 20040401
  Receipt Date: 20040326
  Transmission Date: 20050107
  Serious: Yes (Life-Threatening, Disabling)
  Sender: FDA-Public Use
  Company Number: US-MERCK-0403USA02496B1

PATIENT
  Sex: Female

DRUGS (1)
  1. SINGULAIR [Suspect]

REACTIONS (1)
  - MUSCLE DISORDER [None]
